FAERS Safety Report 4454425-9 (Version None)
Quarter: 2004Q3

REPORT INFORMATION
  Report Type: 
  Country: None (occurrence: None)
  Receive Date: 20040916
  Receipt Date: 20040916
  Transmission Date: 20050211
  Serious: Yes (Other)
  Sender: FDA-Public Use
  Company Number: None

PATIENT
  Age: 83 Year
  Sex: Female

DRUGS (2)
  1. VANCOMYCIN [Suspect]
     Indication: CELLULITIS
     Dosage: 800 MG IV Q 24 HRS
     Route: 042
     Dates: start: 20040819, end: 20040909
  2. SODIUM CHLORIDE [Suspect]
     Dosage: 250 ML IV Q 24HRS
     Route: 042
     Dates: start: 20040819, end: 20040909

REACTIONS (1)
  - RASH [None]
